FAERS Safety Report 5620137-9 (Version None)
Quarter: 2008Q1

REPORT INFORMATION
  Report Type: 
  Country: None (occurrence: None)
  Receive Date: 20080208
  Receipt Date: 20080128
  Transmission Date: 20080703
  Serious: Yes (Other)
  Sender: FDA-Public Use
  Company Number: US-ELI_LILLY_AND_COMPANY-US200801005916

PATIENT
  Age: 83 Year
  Sex: Female

DRUGS (2)
  1. FORTEO [Suspect]
     Indication: OSTEOPOROSIS
     Route: 058
     Dates: start: 20050401
  2. EVISTA [Concomitant]
     Indication: OSTEOPOROSIS
     Dosage: UNK, UNK
     Dates: start: 20050101, end: 20050101

REACTIONS (1)
  - AORTIC ANEURYSM [None]
